FAERS Safety Report 16667972 (Version 4)
Quarter: 2019Q3

REPORT INFORMATION
  Report Type: Spontaneous
  Country: JP (occurrence: JP)
  Receive Date: 20190805
  Receipt Date: 20190930
  Transmission Date: 20191004
  Serious: Yes (Hospitalization)
  Sender: FDA-Public Use
  Company Number: JP-PFIZER INC-2019331550

PATIENT

DRUGS (11)
  1. VANCOMYCIN [Suspect]
     Active Substance: VANCOMYCIN
     Indication: MENINGITIS
  2. FRUCTOSE;GLYCERIN [Suspect]
     Active Substance: FRUCTOSE\GLYCERIN
     Indication: INTRACRANIAL PRESSURE INCREASED
     Dosage: 400 ML, DAILY (CONCENTRATED GLYCERINE AND FRUCTOSE)
     Route: 064
  3. LINEZOLID. [Suspect]
     Active Substance: LINEZOLID
     Indication: STAPHYLOCOCCAL INFECTION
     Dosage: 600 MG, 2X/DAY
     Route: 064
  4. DROPERIDOL. [Suspect]
     Active Substance: DROPERIDOL
     Indication: SEDATIVE THERAPY
  5. RITODRINE HYDROCHLORIDE [Suspect]
     Active Substance: RITODRINE HYDROCHLORIDE
     Indication: UTERINE CONTRACTIONS DURING PREGNANCY
     Dosage: UNK
     Route: 064
  6. MEROPENEM. [Suspect]
     Active Substance: MEROPENEM
     Indication: MENINGITIS
  7. MEROPENEM. [Suspect]
     Active Substance: MEROPENEM
     Indication: STAPHYLOCOCCAL INFECTION
     Dosage: 1 G, 3X/DAY
     Route: 064
  8. LINEZOLID. [Suspect]
     Active Substance: LINEZOLID
     Indication: MENINGITIS
  9. VANCOMYCIN [Suspect]
     Active Substance: VANCOMYCIN
     Indication: STAPHYLOCOCCAL INFECTION
     Dosage: 1.5 MG, 2X/DAY
     Route: 064
  10. DROPERIDOL. [Suspect]
     Active Substance: DROPERIDOL
     Indication: LOCAL ANAESTHESIA
     Dosage: UNK
     Route: 064
  11. FRUCTOSE;GLYCERIN [Suspect]
     Active Substance: FRUCTOSE\GLYCERIN
     Indication: BRAIN OEDEMA

REACTIONS (3)
  - Low birth weight baby [Unknown]
  - Premature baby [Unknown]
  - Maternal exposure during pregnancy [Unknown]
